FAERS Safety Report 13259513 (Version 2)
Quarter: 2017Q1

REPORT INFORMATION
  Report Type: Spontaneous
  Country: EG (occurrence: EG)
  Receive Date: 20170222
  Receipt Date: 20170227
  Transmission Date: 20170428
  Serious: Yes (Hospitalization)
  Sender: FDA-Public Use
  Company Number: PHHY2017EG024796

PATIENT
  Age: 42 Year
  Sex: Male

DRUGS (1)
  1. CATAFLAM [Suspect]
     Active Substance: DICLOFENAC POTASSIUM
     Indication: GINGIVAL PAIN
     Dosage: UNK, BID
     Route: 030

REACTIONS (1)
  - Renal disorder [Recovered/Resolved]
